FAERS Safety Report 9520763 (Version 1)
Quarter: 2013Q3

REPORT INFORMATION
  Report Type: Spontaneous
  Country: PL (occurrence: None)
  Receive Date: 20130911
  Receipt Date: 20130911
  Transmission Date: 20140515
  Serious: Yes (Other)
  Sender: FDA-Public Use
  Company Number: 2013AP007885

PATIENT
  Age: 60 Year
  Sex: Female

DRUGS (7)
  1. CICLOSPORIN [Suspect]
     Indication: IMMUNOSUPPRESSANT DRUG THERAPY
  2. AZATHIOPRINE [Suspect]
     Indication: IMMUNOSUPPRESSANT DRUG THERAPY
  3. PREDNISONE [Suspect]
     Indication: IMMUNOSUPPRESSANT DRUG THERAPY
  4. VITAMIN B COMPLEX /00003501 / (B-KOMPLEX) [Concomitant]
  5. IODINE THERAPY (IODINE THERAPY) [Concomitant]
  6. ULTRALENTE INSULIN (INSULIN ZINC SUSPENSION) [Concomitant]
  7. SEMILENTE (INSULIN ZINC SUSPENISON) [Concomitant]

REACTIONS (3)
  - Squamous cell carcinoma of skin [None]
  - Bowen^s disease [None]
  - Skin graft [None]
